FAERS Safety Report 23107317 (Version 1)
Quarter: 2023Q4

REPORT INFORMATION
  Report Type: Other
  Country: CA (occurrence: CA)
  Receive Date: 20231026
  Receipt Date: 20231026
  Transmission Date: 20240110
  Serious: Yes (Other)
  Sender: FDA-Public Use
  Company Number: CA-APOTEX-2023AP015650

PATIENT
  Sex: Female

DRUGS (1)
  1. TAMOXIFEN [Suspect]
     Active Substance: TAMOXIFEN
     Indication: Breast cancer
     Dosage: UNK
     Route: 048

REACTIONS (6)
  - Speech disorder [Recovering/Resolving]
  - Hemiplegia [Recovering/Resolving]
  - Monoplegia [Recovering/Resolving]
  - Gastrointestinal disorder [Recovering/Resolving]
  - Cerebrovascular accident [Recovering/Resolving]
  - Fatigue [Recovering/Resolving]
